FAERS Safety Report 9374681 (Version 1)
Quarter: 2013Q2

REPORT INFORMATION
  Report Type: Spontaneous
  Country: US (occurrence: US)
  Receive Date: 20130628
  Receipt Date: 20130628
  Transmission Date: 20140414
  Serious: Yes (Hospitalization)
  Sender: FDA-Public Use
  Company Number: US-BAYER-2013-079466

PATIENT
  Age: 22 Year
  Sex: Female

DRUGS (7)
  1. YAZ [Suspect]
  2. CITALOPRAM [Concomitant]
  3. CLINDAMYCIN [Concomitant]
  4. HYDROCODONE/ACETAMINOPHEN [Concomitant]
  5. IBUPROFEN [Concomitant]
  6. ONDANSETRON [Concomitant]
  7. FLUCONAZOLE [Concomitant]

REACTIONS (1)
  - Pulmonary embolism [None]
